FAERS Safety Report 16021723 (Version 2)
Quarter: 2019Q1

REPORT INFORMATION
  Report Type: Spontaneous
  Country: US (occurrence: US)
  Receive Date: 20190301
  Receipt Date: 20190329
  Transmission Date: 20190418
  Serious: Yes (Life-Threatening, Other)
  Sender: FDA-Public Use
  Company Number: US-ASTRAZENECA-2019SE32533

PATIENT
  Age: 15476 Day
  Sex: Female
  Weight: 99.8 kg

DRUGS (1)
  1. FASENRA [Suspect]
     Active Substance: BENRALIZUMAB
     Indication: ASTHMA
     Route: 058
     Dates: start: 20181130

REACTIONS (15)
  - Malaise [Unknown]
  - Feeling of body temperature change [Unknown]
  - Anaphylactic reaction [Unknown]
  - Influenza [Unknown]
  - Fatigue [Unknown]
  - Feeling abnormal [Unknown]
  - Dyspnoea [Unknown]
  - Pleurisy [Unknown]
  - Flushing [Unknown]
  - Bronchitis [Unknown]
  - Ear infection [Unknown]
  - Pain [Unknown]
  - Sinusitis [Unknown]
  - Hypersensitivity [Unknown]
  - Drug ineffective [Unknown]

NARRATIVE: CASE EVENT DATE: 20190216
